FAERS Safety Report 13974227 (Version 1)
Quarter: 2017Q3

REPORT INFORMATION
  Report Type: Spontaneous
  Country: US (occurrence: US)
  Receive Date: 20170915
  Receipt Date: 20170915
  Transmission Date: 20171128
  Serious: No
  Sender: FDA-Public Use
  Company Number: US-LUNDBECK-DKLU2037054

PATIENT

DRUGS (2)
  1. EPIDIOLEX [Interacting]
     Active Substance: CANNABIDIOL
     Indication: EPILEPSY
     Route: 048
  2. CLOBAZAM [Suspect]
     Active Substance: CLOBAZAM
     Indication: EPILEPSY
     Route: 048

REACTIONS (3)
  - Anticonvulsant drug level increased [Unknown]
  - Sedation [Unknown]
  - Drug interaction [Unknown]
